FAERS Safety Report 8306998-3 (Version None)
Quarter: 2012Q2

REPORT INFORMATION
  Report Type: 
  Country: None (occurrence: None)
  Receive Date: 20120424
  Receipt Date: 20120412
  Transmission Date: 20120825
  Serious: Yes (Hospitalization)
  Sender: FDA-Public Use
  Company Number: CA-JNJFOC-20120209098

PATIENT
  Sex: Female
  Weight: 225 kg

DRUGS (8)
  1. WELLBUTRIN [Concomitant]
     Route: 065
  2. DIOVAN [Concomitant]
     Route: 065
  3. REMICADE [Suspect]
     Route: 042
     Dates: start: 20111115
  4. REMICADE [Suspect]
     Indication: RHEUMATOID ARTHRITIS
     Route: 042
     Dates: start: 20071018
  5. TYLENOL W/ CODEINE NO. 4 [Concomitant]
     Route: 065
  6. PREVACID [Concomitant]
     Route: 065
  7. PREDNISONE TAB [Concomitant]
     Route: 065
  8. AVELOX [Suspect]
     Indication: SINUSITIS
     Route: 065

REACTIONS (2)
  - DRUG HYPERSENSITIVITY [None]
  - SINUSITIS [None]
